FAERS Safety Report 9300149 (Version 1)
Quarter: 2012Q4

REPORT INFORMATION
  Report Type: Spontaneous
  Country: US (occurrence: None)
  Receive Date: 20121113
  Receipt Date: 20121113
  Transmission Date: 20130627
  Serious: Yes (Other)
  Sender: FDA-Public Use
  Company Number: VAL_00986_2012

PATIENT
  Sex: Female
  Weight: 73 kg

DRUGS (18)
  1. METOPROLOL [Suspect]
     Indication: PRODUCT USED FOR UNKNOWN INDICATION
     Dates: end: 2012
  2. METOPROLOL [Suspect]
     Indication: PRODUCT USED FOR UNKNOWN INDICATION
     Route: 048
     Dates: end: 2012
  3. JAKAFI [Suspect]
     Indication: POLYCYTHAEMIA VERA
     Route: 048
     Dates: start: 20120203, end: 20120514
  4. JAKAFI [Suspect]
     Indication: MYELOFIBROSIS
     Route: 048
     Dates: start: 20120203, end: 20120514
  5. JAKAFI [Suspect]
     Indication: POLYCYTHAEMIA VERA
     Route: 048
     Dates: start: 20120515, end: 2012
  6. JAKAFI [Suspect]
     Indication: MYELOFIBROSIS
     Route: 048
     Dates: start: 20120515, end: 2012
  7. JAKAFI [Suspect]
     Indication: POLYCYTHAEMIA VERA
     Dates: start: 201206
  8. JAKAFI [Suspect]
     Indication: MYELOFIBROSIS
     Dates: start: 201206
  9. VITAMIN E /00110501/ [Concomitant]
  10. ALLOPURINOL [Concomitant]
  11. GLUCOSAMINE SULFATE W/CHONDROITIN [Concomitant]
  12. CALCIUM [Concomitant]
  13. MULTIVITAMINS, PLAIN [Concomitant]
  14. ASPIRIN [Concomitant]
  15. D-MANNOSE [Concomitant]
  16. L-LYSINE /00919901/ [Concomitant]
  17. CRANBERRY BERCO [Concomitant]
  18. VITAMIN D /00318501/ (COLECALCIFEROL) [Concomitant]

REACTIONS (10)
  - Dizziness [None]
  - Weight increased [None]
  - Haemoglobin decreased [None]
  - Platelet count decreased [None]
  - Dizziness postural [None]
  - Blood pressure decreased [None]
  - Heart rate decreased [None]
  - Fall [None]
  - Gait disturbance [None]
  - Flatulence [None]
